FAERS Safety Report 5678138-0 (Version None)
Quarter: 2008Q1

REPORT INFORMATION
  Report Type: 
  Country: None (occurrence: None)
  Receive Date: 20080324
  Receipt Date: 20080324
  Transmission Date: 20080703
  Serious: Yes (Hospitalization)
  Sender: FDA-Public Use
  Company Number: None

PATIENT
  Age: 67 Year
  Sex: Male

DRUGS (1)
  1. PERFLUTREN [Suspect]
     Indication: ECHOCARDIOGRAM
     Dates: start: 20080109, end: 20080109

REACTIONS (3)
  - BACK PAIN [None]
  - BRADYCARDIA [None]
  - HYPOTENSION [None]
